FAERS Safety Report 5804628-3 (Version None)
Quarter: 2008Q3

REPORT INFORMATION
  Report Type: 
  Country: None (occurrence: None)
  Receive Date: 20080709
  Receipt Date: 20080613
  Transmission Date: 20090109
  Serious: Yes (Hospitalization)
  Sender: FDA-Public Use
  Company Number: US-ROCHE-571740

PATIENT
  Age: 72 Year
  Sex: Female

DRUGS (2)
  1. CAPECITABINE [Suspect]
     Route: 065
  2. BEVACIZUMAB [Suspect]
     Route: 065

REACTIONS (2)
  - PNEUMONITIS [None]
  - PYREXIA [None]
